FAERS Safety Report 23504995 (Version 1)
Quarter: 2024Q1

REPORT INFORMATION
  Report Type: Spontaneous
  Country: GB (occurrence: GB)
  Receive Date: 20240209
  Receipt Date: 20240209
  Transmission Date: 20240410
  Serious: No
  Sender: FDA-Public Use
  Company Number: None

PATIENT
  Age: 47 Year
  Sex: Female
  Weight: 92 kg

DRUGS (26)
  1. GABAPENTIN [Suspect]
     Active Substance: GABAPENTIN
     Indication: Ill-defined disorder
     Dosage: UNK
     Route: 065
     Dates: start: 20231122
  2. ACYCLOVIR [Concomitant]
     Active Substance: ACYCLOVIR
     Indication: Product used for unknown indication
     Dosage: 1 DOSAGE FORM, QD, ONE TABLET DAILY FOR SIX MONTHS (TO COMPLETE TH...
     Route: 065
     Dates: start: 20230127
  3. Artificial saliva [Concomitant]
     Indication: Product used for unknown indication
     Dosage: UNK, USE AS DIRECTED
     Route: 065
     Dates: start: 20230421
  4. BISACODYL [Concomitant]
     Active Substance: BISACODYL
     Indication: Constipation
     Dosage: UNK, 1-2 AT NIGHT FOR CONSTIPATION
     Route: 065
     Dates: start: 20230926, end: 20231024
  5. AMOXICILLIN\CLAVULANATE POTASSIUM [Concomitant]
     Active Substance: AMOXICILLIN\CLAVULANATE POTASSIUM
     Indication: Product used for unknown indication
     Dosage: UNK, TID
     Route: 065
     Dates: start: 20231117
  6. DAPSONE [Concomitant]
     Active Substance: DAPSONE
     Indication: Product used for unknown indication
     Dosage: UNK, QD
     Route: 065
     Dates: start: 20230823
  7. Eygamo [Concomitant]
     Indication: Product used for unknown indication
     Dosage: 1 DROP, BID
     Route: 065
     Dates: start: 20230519
  8. FERROUS SULFATE [Concomitant]
     Active Substance: FERROUS SULFATE
     Indication: Product used for unknown indication
     Dosage: 1 DOSAGE FORM, QD
     Route: 065
  9. FLUTICASONE FUROATE [Concomitant]
     Active Substance: FLUTICASONE FUROATE
     Indication: Product used for unknown indication
     Dosage: UNK, OD, TWO SPRAYS INTO EACH NOSTRIL ONCE A DAY, WHEN C...
     Route: 065
     Dates: start: 20230112
  10. FOLIC ACID [Concomitant]
     Active Substance: FOLIC ACID
     Indication: Product used for unknown indication
     Dosage: UNK, ONCE WEEKLY, ONCE WEEKLY AS DIRECTED BY YOUR RHEUMATOLOGIST
     Route: 065
     Dates: start: 20230525
  11. HYPROMELLOSES [Concomitant]
     Active Substance: HYPROMELLOSES
     Indication: Product used for unknown indication
     Dosage: UNK, USE AS DIRECTED. DISCARD BOTTLE 3 MONTHS AFTER ...
     Route: 065
     Dates: start: 20230427, end: 20231026
  12. Hydromol emollient [Concomitant]
     Indication: Product used for unknown indication
     Dosage: UNK, USE AS SOAP SUBSTITUTE AS PER YOUR CONSULTANT
     Route: 065
     Dates: start: 20211122
  13. HYDROXYCHLOROQUINE SULFATE [Concomitant]
     Active Substance: HYDROXYCHLOROQUINE SULFATE
     Indication: Product used for unknown indication
     Dosage: UNK, 2 EVERY DAY AS RECOMMENDED BY YOUR SPECIALIST
     Route: 065
     Dates: start: 20230413
  14. HYALURONATE SODIUM [Concomitant]
     Active Substance: HYALURONATE SODIUM
     Indication: Product used for unknown indication
     Dosage: 1 DROP, ONE DROP TO EYE(S) AS DIRECTED
     Route: 065
     Dates: start: 20230927, end: 20231027
  15. Hylo-tear [Concomitant]
     Indication: Product used for unknown indication
     Dosage: UNK, USE AS DIRECTED
     Route: 065
     Dates: start: 20230914, end: 20231026
  16. BUTYLSCOPOLAMINE BROMIDE [Concomitant]
     Active Substance: BUTYLSCOPOLAMINE BROMIDE
     Indication: Product used for unknown indication
     Dosage: UNK, QID, TAKE TWO 4 TIMES/DAY
     Route: 065
     Dates: start: 20231101, end: 20231108
  17. LANSOPRAZOLE [Concomitant]
     Active Substance: LANSOPRAZOLE
     Indication: Product used for unknown indication
     Dosage: UNK, QD, TAKE ONE ONCE DAILY AS GASTRO-PROTECTION
     Route: 065
     Dates: start: 20230914, end: 20231012
  18. POLYETHYLENE GLYCOL 3350\POTASSIUM CHLORIDE\SODIUM BICARBONATE\SODIUM [Concomitant]
     Active Substance: POLYETHYLENE GLYCOL 3350\POTASSIUM CHLORIDE\SODIUM BICARBONATE\SODIUM CHLORIDE
     Indication: Product used for unknown indication
     Dosage: UNK, 3 A DAY TO GET AND MAINTAIN A DAILY SOFT STOOL
     Route: 065
     Dates: start: 20220207, end: 20231024
  19. LYMECYCLINE [Concomitant]
     Active Substance: LYMECYCLINE
     Indication: Product used for unknown indication
     Dosage: UNK, OD
     Route: 065
     Dates: start: 20230213
  20. MAXIDEX [Concomitant]
     Active Substance: DEXAMETHASONE
     Indication: Product used for unknown indication
     Dosage: 1 DROP, ONE DROP EVERY 4 HRS OR AS DIRECTED BY YOUR OPT...
     Route: 065
     Dates: start: 20220705
  21. NAPROXEN [Concomitant]
     Active Substance: NAPROXEN
     Indication: Product used for unknown indication
     Dosage: UNK, BID, TAKE ONE TWICE DAILY
     Route: 065
     Dates: start: 20211122
  22. OMEPRAZOLE [Concomitant]
     Active Substance: OMEPRAZOLE
     Indication: Product used for unknown indication
     Dosage: UNK, BID, TAKE ONE TWICE DAILY
     Route: 065
     Dates: start: 20230421
  23. PREGABALIN [Concomitant]
     Active Substance: PREGABALIN
     Indication: Product used for unknown indication
     Dosage: UNK, BID, TAKE ONE TWICE DAILY
     Route: 065
     Dates: start: 20220629
  24. RIZATRIPTAN [Concomitant]
     Active Substance: RIZATRIPTAN
     Indication: Product used for unknown indication
     Dosage: 1 DOSAGE FORM, (ONE TABLET TO BE TAKEN AS DIRECTED AS SOON AS P)
     Route: 065
     Dates: start: 20220624, end: 20231024
  25. SENOKOT [Concomitant]
     Active Substance: SENNOSIDES
     Indication: Product used for unknown indication
     Dosage: UNK, HS, (1 OR 2 5ML SPOONFULS AT NIGHT)
     Route: 065
     Dates: start: 20230406
  26. ACETAMINOPHEN\CODEINE PHOSPHATE [Concomitant]
     Active Substance: ACETAMINOPHEN\CODEINE PHOSPHATE
     Indication: Product used for unknown indication
     Dosage: UNK, ONE TO TWO TABLETS TO BE TAKEN EVERY FOUR TO SI...
     Route: 065
     Dates: start: 20221007

REACTIONS (1)
  - Oedema [Recovered/Resolved]

NARRATIVE: CASE EVENT DATE: 20231122
